FAERS Safety Report 6316110-8 (Version None)
Quarter: 2009Q3

REPORT INFORMATION
  Report Type: 
  Country: None (occurrence: None)
  Receive Date: 20090820
  Receipt Date: 20090812
  Transmission Date: 20100115
  Serious: Yes (Other)
  Sender: FDA-Public Use
  Company Number: PHEH2009US09382

PATIENT
  Sex: Female

DRUGS (5)
  1. ZOMETA [Suspect]
  2. SYNTHROID [Concomitant]
  3. AROMASIN [Concomitant]
  4. ANALGESICS [Concomitant]
  5. ALLERGY MEDICATION [Concomitant]

REACTIONS (2)
  - PAIN [None]
  - PARALYSIS [None]
